FAERS Safety Report 12624983 (Version 1)
Quarter: 2016Q3

REPORT INFORMATION
  Report Type: Spontaneous
  Country: US (occurrence: US)
  Receive Date: 20160805
  Receipt Date: 20160805
  Transmission Date: 20161109
  Serious: Yes (Other)
  Sender: FDA-Public Use
  Company Number: US-ASTELLAS-2016US023131

PATIENT
  Age: 58 Year
  Sex: Male

DRUGS (1)
  1. PROGRAF [Suspect]
     Active Substance: TACROLIMUS\TACROLIMUS ANHYDROUS
     Indication: HEART TRANSPLANT
     Dosage: UNK, UNKNOWN FREQ.
     Route: 065
     Dates: start: 20150119, end: 201505

REACTIONS (3)
  - Optic nerve injury [Unknown]
  - Visual field defect [Unknown]
  - Blindness [Unknown]

NARRATIVE: CASE EVENT DATE: 201502
